FAERS Safety Report 23505950 (Version 1)
Quarter: 2024Q1

REPORT INFORMATION
  Report Type: Spontaneous
  Country: US (occurrence: None)
  Receive Date: 20240208
  Receipt Date: 20240208
  Transmission Date: 20240410
  Serious: Yes (Hospitalization, Other)
  Sender: FDA-Public Use
  Company Number: None

PATIENT
  Age: 54 Year
  Sex: Male
  Weight: 115 kg

DRUGS (1)
  1. PERFLUTREN [Suspect]
     Active Substance: PERFLUTREN
     Indication: Echocardiogram
     Dosage: OTHER FREQUENCY : ONCE;?
     Route: 040

REACTIONS (3)
  - Agonal respiration [None]
  - Altered state of consciousness [None]
  - Eye movement disorder [None]

NARRATIVE: CASE EVENT DATE: 20240202
